FAERS Safety Report 15555126 (Version 2)
Quarter: 2018Q4

REPORT INFORMATION
  Report Type: Spontaneous
  Country: US (occurrence: US)
  Receive Date: 20181026
  Receipt Date: 20181130
  Transmission Date: 20190205
  Serious: No
  Sender: FDA-Public Use
  Company Number: US-ASTRAZENECA-2018SF27506

PATIENT
  Sex: Male

DRUGS (1)
  1. SYMBICORT [Suspect]
     Active Substance: BUDESONIDE\FORMOTEROL FUMARATE DIHYDRATE
     Indication: CHRONIC OBSTRUCTIVE PULMONARY DISEASE
     Dosage: 80/4.5 MCG, TWO PUFFS TWO TIMES A DAY
     Route: 055

REACTIONS (7)
  - Malaise [Unknown]
  - Device leakage [Unknown]
  - Wrong technique in product usage process [Unknown]
  - Off label use [Unknown]
  - Oxygen saturation decreased [Unknown]
  - Underdose [Unknown]
  - Fatigue [Unknown]

NARRATIVE: CASE EVENT DATE: 201809
